FAERS Safety Report 14178309 (Version 1)
Quarter: 2017Q4

REPORT INFORMATION
  Report Type: Spontaneous
  Country: CN (occurrence: CN)
  Receive Date: 20171110
  Receipt Date: 20171110
  Transmission Date: 20180321
  Serious: Yes (Other)
  Sender: FDA-Public Use
  Company Number: CN-BAYER-2017-210094

PATIENT
  Age: 78 Year
  Sex: Male
  Weight: 54 kg

DRUGS (2)
  1. AVELOX [Suspect]
     Active Substance: MOXIFLOXACIN HYDROCHLORIDE
     Indication: LUNG INFECTION
     Dosage: 400 MG, QD
     Route: 041
     Dates: start: 20170814, end: 20170818
  2. VORICONAZOLE. [Concomitant]
     Active Substance: VORICONAZOLE
     Indication: ANTI-INFECTIVE THERAPY
     Dosage: UNK

REACTIONS (1)
  - Mental disorder [Recovering/Resolving]

NARRATIVE: CASE EVENT DATE: 20170818
